FAERS Safety Report 11032940 (Version 1)
Quarter: 2015Q2

REPORT INFORMATION
  Report Type: Spontaneous
  Country: CA (occurrence: CA)
  Receive Date: 20150415
  Receipt Date: 20150415
  Transmission Date: 20150821
  Serious: Yes (Death)
  Sender: FDA-Public Use
  Company Number: CA-TEVA-554461ACC

PATIENT
  Age: 54 Year
  Sex: Male
  Weight: 63.56 kg

DRUGS (1)
  1. OLANZAPINE. [Suspect]
     Active Substance: OLANZAPINE
     Indication: PSYCHOTIC DISORDER
     Dosage: 15 MILLIGRAM DAILY;
     Route: 048

REACTIONS (1)
  - Arrhythmia [Fatal]
